FAERS Safety Report 7493799-1 (Version None)
Quarter: 2011Q2

REPORT INFORMATION
  Report Type: 
  Country: None (occurrence: None)
  Receive Date: 20110520
  Receipt Date: 20110511
  Transmission Date: 20111010
  Serious: Yes (Hospitalization)
  Sender: FDA-Public Use
  Company Number: CA-SANOFI-AVENTIS-2011SA005650

PATIENT
  Age: 74 Year
  Sex: Female
  Weight: 95 kg

DRUGS (13)
  1. LORAZEPAM [Concomitant]
  2. SOLOSTAR [Suspect]
     Dates: start: 20101215, end: 20110122
  3. AVAPRO [Concomitant]
  4. QUETIAPINE [Concomitant]
  5. FUROSEMIDE [Concomitant]
  6. VENLAFAXINE [Concomitant]
  7. PLAVIX [Concomitant]
  8. LANTUS [Concomitant]
  9. BISOPROLOL FUMARATE [Concomitant]
  10. ATORVASTATIN [Concomitant]
  11. LANTUS [Suspect]
     Indication: TYPE 2 DIABETES MELLITUS
     Route: 058
     Dates: start: 20101215, end: 20110122
  12. AMITRIPTYLINE HCL [Concomitant]
  13. URINARY ANTISPASMODICS [Concomitant]

REACTIONS (3)
  - HYPERGLYCAEMIA [None]
  - UROSEPSIS [None]
  - ATRIAL FIBRILLATION [None]
